FAERS Safety Report 6788406-7 (Version None)
Quarter: 2010Q2

REPORT INFORMATION
  Report Type: 
  Country: None (occurrence: None)
  Receive Date: 20100623
  Receipt Date: 20080306
  Transmission Date: 20101027
  Serious: No
  Sender: FDA-Public Use
  Company Number: US-PFIZER INC-2008021670

PATIENT
  Sex: Female
  Weight: 72.727 kg

DRUGS (9)
  1. CADUET [Suspect]
     Indication: HYPERTENSION
     Dosage: 5/20MG TDD:5/20
     Route: 048
     Dates: start: 20080123
  2. CADUET [Suspect]
     Indication: BLOOD CHOLESTEROL INCREASED
  3. VITAMINS [Concomitant]
  4. CENTRUM [Concomitant]
  5. MAGNESIUM [Concomitant]
  6. CALCIUM CARBONATE [Concomitant]
  7. UBIDECARENONE [Concomitant]
  8. CLARITIN [Concomitant]
  9. PROTONIX [Concomitant]

REACTIONS (2)
  - STOMATITIS [None]
  - TONGUE ULCERATION [None]
